FAERS Safety Report 23881617 (Version 1)
Quarter: 2024Q2

REPORT INFORMATION
  Report Type: Spontaneous
  Country: US (occurrence: US)
  Receive Date: 20240521
  Receipt Date: 20240521
  Transmission Date: 20240716
  Serious: No
  Sender: FDA-Public Use
  Company Number: US-SA-SAC20240520000105

PATIENT
  Sex: Female
  Weight: 90.7 kg

DRUGS (15)
  1. DUPIXENT [Suspect]
     Active Substance: DUPILUMAB
     Indication: Dermatitis atopic
     Dosage: 300 MG, QOW
     Route: 058
  2. NITROGLYCERIN [Concomitant]
     Active Substance: NITROGLYCERIN
     Dosage: UNK
  3. SERTRALINE HYDROCHLORIDE [Concomitant]
     Active Substance: SERTRALINE HYDROCHLORIDE
     Dosage: UNK
  4. IRON [Concomitant]
     Active Substance: IRON
  5. VITAMIN D3 [Concomitant]
     Active Substance: CHOLECALCIFEROL
  6. CALCIUM [Concomitant]
     Active Substance: CALCIUM
  7. REPATHA [Concomitant]
     Active Substance: EVOLOCUMAB
  8. BACLOFEN [Concomitant]
     Active Substance: BACLOFEN
  9. FAMOTIDINE [Concomitant]
     Active Substance: FAMOTIDINE
  10. PANTOPRAZOLE SODIUM [Concomitant]
     Active Substance: PANTOPRAZOLE SODIUM
  11. RANOLAZINE [Concomitant]
     Active Substance: RANOLAZINE
  12. CLOPIDOGREL [Concomitant]
     Active Substance: CLOPIDOGREL BISULFATE
  13. NIFEDIPINE [Concomitant]
     Active Substance: NIFEDIPINE
  14. LOSARTAN POTASSIUM [Concomitant]
     Active Substance: LOSARTAN POTASSIUM
  15. METOPROLOL SUCCINATE [Concomitant]
     Active Substance: METOPROLOL SUCCINATE

REACTIONS (1)
  - Injection site vesicles [Unknown]
